FAERS Safety Report 7329392-0 (Version None)
Quarter: 2011Q1

REPORT INFORMATION
  Report Type: 
  Country: None (occurrence: None)
  Receive Date: 20110228
  Receipt Date: 20110228
  Transmission Date: 20110831
  Serious: No
  Sender: FDA-Public Use
  Company Number: None

PATIENT
  Age: 43 Year
  Sex: Male
  Weight: 101.1521 kg

DRUGS (1)
  1. DEXILANT [Suspect]
     Indication: ASTHMA
     Dosage: 1 CAPSULE ONCE DAILY PO
     Route: 048
     Dates: start: 20110216, end: 20110226

REACTIONS (2)
  - PETECHIAE [None]
  - HAEMORRHAGE [None]
